FAERS Safety Report 6315086-7 (Version None)
Quarter: 2009Q3

REPORT INFORMATION
  Report Type: 
  Country: None (occurrence: None)
  Receive Date: 20090818
  Receipt Date: 20090818
  Transmission Date: 20100115
  Serious: Yes (Other)
  Sender: FDA-Public Use
  Company Number: None

PATIENT
  Age: 37 Year
  Sex: Male
  Weight: 88.4514 kg

DRUGS (1)
  1. AMPHETAMINE 20MG BARR [Suspect]
     Dosage: 20MG TWICE DAILY PO
     Route: 048
     Dates: start: 20090701, end: 20090816

REACTIONS (9)
  - ABDOMINAL DISCOMFORT [None]
  - DIARRHOEA [None]
  - DISORIENTATION [None]
  - DIZZINESS [None]
  - ERECTILE DYSFUNCTION [None]
  - MOOD SWINGS [None]
  - NICOTINE DEPENDENCE [None]
  - PALPITATIONS [None]
  - VISUAL IMPAIRMENT [None]
